FAERS Safety Report 23446808 (Version 1)
Quarter: 2024Q1

REPORT INFORMATION
  Report Type: Other
  Country: None (occurrence: US)
  Receive Date: 20240126
  Receipt Date: 20240126
  Transmission Date: 20240409
  Serious: Yes (Hospitalization)
  Sender: FDA-Public Use
  Company Number: US-B.Braun Medical Inc.-2152119

PATIENT
  Sex: Male

DRUGS (6)
  1. CALCIUM GLUCONATE [Suspect]
     Active Substance: CALCIUM GLUCONATE
     Route: 048
  2. CALCITRIOL [Suspect]
     Active Substance: CALCITRIOL
  3. ZOLEDRONIC ACID [Concomitant]
     Active Substance: ZOLEDRONIC ACID
  4. CALCITONIN [Concomitant]
     Active Substance: CALCITONIN
  5. CINACALCET [Concomitant]
     Active Substance: CINACALCET
  6. FUROSEMIDE [Concomitant]
     Active Substance: FUROSEMIDE

REACTIONS (3)
  - Acute kidney injury [None]
  - Hypercalcaemia [None]
  - Off label use [None]
